FAERS Safety Report 7569303-6 (Version None)
Quarter: 2011Q2

REPORT INFORMATION
  Report Type: 
  Country: None (occurrence: None)
  Receive Date: 20110623
  Receipt Date: 20110616
  Transmission Date: 20111010
  Serious: Yes (Death, Other)
  Sender: FDA-Public Use
  Company Number: GB-PFIZER INC-2011028642

PATIENT
  Age: 29 Year
  Sex: Male
  Weight: 97 kg

DRUGS (4)
  1. CLOBAZAM [Concomitant]
     Indication: EPILEPSY
     Dosage: 10 MG, 2X/DAY
     Route: 048
     Dates: start: 20011127
  2. PHENYTOIN SODIUM [Suspect]
     Dosage: 86.25 ML, 1X/DAY
     Route: 048
     Dates: start: 20101123
  3. VALPROIC ACID [Concomitant]
     Indication: EPILEPSY
     Dosage: 1500 MG, 2X/DAY
     Route: 048
     Dates: start: 20021004
  4. PHENYTOIN SODIUM [Suspect]
     Indication: EPILEPSY
     Dosage: UNK
     Route: 048
     Dates: end: 20101123

REACTIONS (2)
  - EPILEPSY [None]
  - ASPHYXIA [None]
